FAERS Safety Report 25917463 (Version 4)
Quarter: 2025Q4

REPORT INFORMATION
  Report Type: Spontaneous
  Country: NZ (occurrence: NZ)
  Receive Date: 20251014
  Receipt Date: 20251216
  Transmission Date: 20260118
  Serious: Yes (Life-Threatening, Hospitalization)
  Sender: CSL BEHRING
  Company Number: NZ-BEH-2025220818

PATIENT
  Age: 87 Year
  Sex: Male
  Weight: 91 kg

DRUGS (10)
  1. HUMAN IMMUNOGLOBULIN G [Suspect]
     Active Substance: HUMAN IMMUNOGLOBULIN G
     Indication: Guillain-Barre syndrome
     Dosage: 20 G
     Route: 042
     Dates: start: 20250929, end: 20250930
  2. HUMAN IMMUNOGLOBULIN G [Suspect]
     Active Substance: HUMAN IMMUNOGLOBULIN G
     Dosage: 10 G
     Route: 042
     Dates: start: 20250930, end: 20250930
  3. HUMAN IMMUNOGLOBULIN G [Suspect]
     Active Substance: HUMAN IMMUNOGLOBULIN G
     Dosage: 5 G
     Route: 042
     Dates: start: 20250930, end: 20250930
  4. HUMAN IMMUNOGLOBULIN G [Suspect]
     Active Substance: HUMAN IMMUNOGLOBULIN G
     Dosage: 20 G
     Route: 042
     Dates: start: 20250930, end: 20251001
  5. HUMAN IMMUNOGLOBULIN G [Suspect]
     Active Substance: HUMAN IMMUNOGLOBULIN G
     Dosage: 10 G
     Route: 042
     Dates: start: 20251001, end: 20251001
  6. HUMAN IMMUNOGLOBULIN G [Suspect]
     Active Substance: HUMAN IMMUNOGLOBULIN G
     Dosage: 5 G
     Route: 042
     Dates: start: 20251001, end: 20251001
  7. ENOXAPARIN SODIUM [Concomitant]
     Active Substance: ENOXAPARIN SODIUM
     Dosage: 40 MG
     Route: 058
     Dates: start: 20250929
  8. LOSARTAN [Concomitant]
     Active Substance: LOSARTAN
     Dosage: 12.5 MG
     Route: 048
     Dates: start: 20250929
  9. LOSARTAN [Concomitant]
     Active Substance: LOSARTAN
     Dosage: 12.5 MG
     Route: 048
     Dates: start: 20250930
  10. IDARUCIZUMAB [Concomitant]
     Active Substance: IDARUCIZUMAB
     Dosage: 5 G
     Route: 042
     Dates: start: 20250930

REACTIONS (2)
  - Hypertension [Recovered/Resolved]
  - Hypertension [Recovered/Resolved]

NARRATIVE: CASE EVENT DATE: 20250929
